FAERS Safety Report 21386603 (Version 1)
Quarter: 2022Q3

REPORT INFORMATION
  Report Type: Spontaneous
  Country: DE (occurrence: DE)
  Receive Date: 20220928
  Receipt Date: 20220928
  Transmission Date: 20221026
  Serious: Yes (Hospitalization)
  Sender: FDA-Public Use
  Company Number: DE-NOVARTISPH-NVSC2022DE217115

PATIENT
  Age: 78 Year
  Sex: Male
  Weight: 84 kg

DRUGS (6)
  1. ALLOPURINOL [Suspect]
     Active Substance: ALLOPURINOL
     Indication: Product used for unknown indication
     Dosage: 300 MG (0.5-0-0-0)
     Route: 048
  2. TORSEMIDE [Suspect]
     Active Substance: TORSEMIDE
     Indication: Product used for unknown indication
     Dosage: 200 MG (0.25-0.25-0-0)
     Route: 048
  3. AMLODIPINE BESYLATE\OLMESARTAN MEDOXOMIL [Suspect]
     Active Substance: AMLODIPINE BESYLATE\OLMESARTAN MEDOXOMIL
     Indication: Product used for unknown indication
     Dosage: UNK UNK, QD (10/40 MG)
     Route: 048
  4. METHOTREXATE [Suspect]
     Active Substance: METHOTREXATE
     Indication: Product used for unknown indication
     Dosage: 150 MG (SONNTAGS EINE)
     Route: 048
  5. FOLISURE [Concomitant]
     Indication: Product used for unknown indication
     Dosage: 5 MG (MONTAGS EINE)
     Route: 048
  6. CHOLECALCIFEROL [Concomitant]
     Active Substance: CHOLECALCIFEROL
     Indication: Product used for unknown indication
     Dosage: UNK (20000 IE, MITTWOCHS EINE) (STRENGTH: 2000 IE)
     Route: 048

REACTIONS (11)
  - Erythema [Unknown]
  - Osteomyelitis [Unknown]
  - Renal impairment [Unknown]
  - Limb injury [Unknown]
  - Peripheral arterial occlusive disease [Unknown]
  - Acute kidney injury [Unknown]
  - Dysuria [Unknown]
  - Dysuria [Unknown]
  - Dysuria [Unknown]
  - Pain [Unknown]
  - Pain in extremity [Unknown]
